FAERS Safety Report 11928600 (Version 2)
Quarter: 2016Q1

REPORT INFORMATION
  Report Type: Spontaneous
  Country: US (occurrence: US)
  Receive Date: 20160119
  Receipt Date: 20160204
  Transmission Date: 20160526
  Serious: Yes (Life-Threatening)
  Sender: FDA-Public Use
  Company Number: US-ELI_LILLY_AND_COMPANY-US201601006559

PATIENT
  Age: 37 Year
  Sex: Female

DRUGS (3)
  1. FENTANYL. [Concomitant]
     Active Substance: FENTANYL
     Indication: AGITATION
     Dosage: UNK, UNKNOWN
     Route: 065
  2. OLANZAPINE. [Suspect]
     Active Substance: OLANZAPINE
     Indication: AGITATION
     Dosage: UNK, UNKNOWN
     Route: 042
     Dates: start: 20140525
  3. METAMFETAMINE [Concomitant]
     Active Substance: METHAMPHETAMINE

REACTIONS (4)
  - Hypoxia [Unknown]
  - Apnoea [Unknown]
  - Respiratory failure [Unknown]
  - Off label use [Unknown]
